FAERS Safety Report 24585701 (Version 1)
Quarter: 2024Q4

REPORT INFORMATION
  Report Type: Spontaneous
  Country: US (occurrence: US)
  Receive Date: 20241106
  Receipt Date: 20241106
  Transmission Date: 20250114
  Serious: Yes (Other)
  Sender: AMGEN
  Company Number: US-AMGEN-USASP2024216087

PATIENT
  Age: 62 Year
  Sex: Female

DRUGS (9)
  1. PREDNISONE [Suspect]
     Active Substance: PREDNISONE
     Indication: Drug reaction with eosinophilia and systemic symptoms
     Dosage: 40 MILLIGRAM, QD
     Route: 048
  2. PREDNISONE [Suspect]
     Active Substance: PREDNISONE
     Indication: Tubulointerstitial nephritis
     Dosage: 80 MILLIGRAM, QD
     Route: 048
  3. PREDNISONE [Suspect]
     Active Substance: PREDNISONE
     Dosage: 10 MILLIGRAM, Q2WK
     Route: 048
  4. CEFEPIME [Concomitant]
     Active Substance: CEFEPIME HYDROCHLORIDE
     Indication: Bacterial test positive
     Dosage: UNK
     Route: 065
  5. VANCOMYCIN [Concomitant]
     Active Substance: VANCOMYCIN
     Indication: Bacterial test positive
     Dosage: UNK
     Route: 065
  6. AZTREONAM [Concomitant]
     Active Substance: AZTREONAM
     Indication: Drug reaction with eosinophilia and systemic symptoms
     Dosage: UNK
     Route: 065
  7. AZTREONAM [Concomitant]
     Active Substance: AZTREONAM
     Indication: Tubulointerstitial nephritis
  8. DAPTOMYCIN [Concomitant]
     Active Substance: DAPTOMYCIN
     Indication: Tubulointerstitial nephritis
     Dosage: UNK
     Route: 065
  9. DAPTOMYCIN [Concomitant]
     Active Substance: DAPTOMYCIN
     Indication: Drug reaction with eosinophilia and systemic symptoms

REACTIONS (2)
  - Drug reaction with eosinophilia and systemic symptoms [Recovering/Resolving]
  - Tubulointerstitial nephritis [Recovering/Resolving]
